FAERS Safety Report 24252941 (Version 1)
Quarter: 2024Q3

REPORT INFORMATION
  Report Type: Spontaneous
  Country: DE (occurrence: DE)
  Receive Date: 20240827
  Receipt Date: 20240827
  Transmission Date: 20241016
  Serious: Yes (Hospitalization)
  Sender: AFAXYS
  Company Number: DE-AFAXYS PHARMA, LLC-2024AFX00009

PATIENT
  Age: 12 Week
  Sex: Male

DRUGS (2)
  1. LIDOCAINE [Suspect]
     Active Substance: LIDOCAINE
     Indication: Nerve block
  2. LIDOCAINE [Suspect]
     Active Substance: LIDOCAINE
     Indication: Local anaesthesia

REACTIONS (2)
  - Sinus tachycardia [Recovered/Resolved]
  - Local anaesthetic systemic toxicity [Recovered/Resolved]
